FAERS Safety Report 8816635 (Version 1)
Quarter: 2012Q4

REPORT INFORMATION
  Report Type: Spontaneous
  Country: US (occurrence: None)
  Receive Date: 20120928
  Receipt Date: 20120928
  Transmission Date: 20130627
  Serious: Yes (Hospitalization)
  Sender: FDA-Public Use
  Company Number: GER/UKI/12/0025940

PATIENT
  Age: 85 Year
  Sex: Male
  Weight: 59 kg

DRUGS (3)
  1. DONEPEZIL (DONEPEZIL) [Suspect]
     Route: 048
     Dates: start: 201110, end: 20120817
  2. OXYBUTYNIN [Suspect]
  3. SIMVASTATIN (SIMVASTATIN) [Concomitant]

REACTIONS (2)
  - Bradycardia [None]
  - Fall [None]
